FAERS Safety Report 6847151-X (Version None)
Quarter: 2010Q3

REPORT INFORMATION
  Report Type: 
  Country: None (occurrence: None)
  Receive Date: 20100716
  Receipt Date: 20100709
  Transmission Date: 20110219
  Serious: No
  Sender: FDA-Public Use
  Company Number: 2009BI041075

PATIENT
  Age: 29 Year
  Sex: Female

DRUGS (2)
  1. TYSABRI [Suspect]
     Indication: MULTIPLE SCLEROSIS
     Route: 042
     Dates: start: 20090707, end: 20100603
  2. TYSABRI [Suspect]
     Route: 042
     Dates: start: 20070924, end: 20080707

REACTIONS (2)
  - HYPERSENSITIVITY [None]
  - INFUSION RELATED REACTION [None]
